FAERS Safety Report 19691714 (Version 1)
Quarter: 2021Q3

REPORT INFORMATION
  Report Type: Spontaneous
  Country: US (occurrence: US)
  Receive Date: 20210812
  Receipt Date: 20210812
  Transmission Date: 20211014
  Serious: Yes (Death)
  Sender: FDA-Public Use
  Company Number: US-KARYOPHARM-2021KPT001015

PATIENT

DRUGS (9)
  1. VELCADE [Concomitant]
     Active Substance: BORTEZOMIB
  2. ONDANSETRON [Concomitant]
     Active Substance: ONDANSETRON
  3. DEXAMETHASONE. [Concomitant]
     Active Substance: DEXAMETHASONE
  4. LIDOCAINE/PRILOCAINE [Concomitant]
     Active Substance: LIDOCAINE\PRILOCAINE
  5. LISINOPRIL. [Concomitant]
     Active Substance: LISINOPRIL
  6. XPOVIO [Suspect]
     Active Substance: SELINEXOR
     Indication: PRODUCT USED FOR UNKNOWN INDICATION
     Dosage: 100 MG, WEEKLY
     Route: 048
     Dates: start: 20210624
  7. ACYCLOVIR [ACICLOVIR] [Concomitant]
     Active Substance: ACYCLOVIR
  8. PROCHLORPERAZINE. [Concomitant]
     Active Substance: PROCHLORPERAZINE
  9. CHLORPROMAZINE. [Concomitant]
     Active Substance: CHLORPROMAZINE

REACTIONS (1)
  - Death [Fatal]
